FAERS Safety Report 22753570 (Version 5)
Quarter: 2023Q4

REPORT INFORMATION
  Report Type: Spontaneous
  Country: BR (occurrence: BR)
  Receive Date: 20230726
  Receipt Date: 20231010
  Transmission Date: 20240110
  Serious: Yes (Disabling, Other)
  Sender: FDA-Public Use
  Company Number: BR-SA-SAC20230726000043

PATIENT
  Age: 20 Year
  Sex: Female
  Weight: 48 kg

DRUGS (3)
  1. SABRIL [Suspect]
     Active Substance: VIGABATRIN
     Indication: Infantile spasms
     Dosage: 1 TABLET AND A HALF EVERY 8 HOURS PER DAY
     Route: 048
     Dates: start: 2003, end: 2023
  2. SABRIL [Suspect]
     Active Substance: VIGABATRIN
     Dosage: 0.5 DF, TID
     Route: 048
     Dates: start: 2023, end: 202308
  3. ILUDRAL [Concomitant]
     Indication: Seizure
     Route: 065
     Dates: start: 2023

REACTIONS (7)
  - Bedridden [Unknown]
  - Seizure [Unknown]
  - Poor quality product administered [Unknown]
  - Hypersomnia [Unknown]
  - Restlessness [Unknown]
  - Agitation [Unknown]
  - Drug ineffective [Unknown]

NARRATIVE: CASE EVENT DATE: 20221001
